FAERS Safety Report 19473850 (Version 1)
Quarter: 2021Q2

REPORT INFORMATION
  Report Type: Report from Study
  Country: MX (occurrence: MX)
  Receive Date: 20210629
  Receipt Date: 20210629
  Transmission Date: 20210717
  Serious: Yes (Hospitalization)
  Sender: FDA-Public Use
  Company Number: NVSC2021MX145702

PATIENT
  Age: 47 Year
  Sex: Female
  Weight: 64 kg

DRUGS (1)
  1. REVOLADE [Suspect]
     Active Substance: ELTROMBOPAG OLAMINE
     Indication: MYELODYSPLASTIC SYNDROME
     Dosage: 1 DF, QD
     Route: 048
     Dates: start: 202105

REACTIONS (2)
  - Platelet count decreased [Unknown]
  - Product use in unapproved indication [Unknown]

NARRATIVE: CASE EVENT DATE: 202105
